FAERS Safety Report 18273332 (Version 1)
Quarter: 2020Q3

REPORT INFORMATION
  Report Type: Spontaneous
  Country: US (occurrence: US)
  Receive Date: 20200916
  Receipt Date: 20200916
  Transmission Date: 20201103
  Serious: Yes (Disabling)
  Sender: FDA-Public Use
  Company Number: None

PATIENT
  Age: 44 Year
  Sex: Male
  Weight: 70.2 kg

DRUGS (2)
  1. BLUMEN CLEAR ADVANCED HAND SANITIZER [Suspect]
     Active Substance: ALCOHOL
     Indication: COVID-19 PROPHYLAXIS
     Dosage: ?          QUANTITY:17 OUNCE(S);?
     Route: 061
     Dates: start: 20200422, end: 20200720
  2. LORATIDINE [Concomitant]
     Active Substance: LORATADINE

REACTIONS (8)
  - Vision blurred [None]
  - Product quality issue [None]
  - Asthenopia [None]
  - Ocular hyperaemia [None]
  - Dizziness [None]
  - Headache [None]
  - Eye pain [None]
  - Blepharospasm [None]

NARRATIVE: CASE EVENT DATE: 20200422
